FAERS Safety Report 21526026 (Version 2)
Quarter: 2022Q4

REPORT INFORMATION
  Report Type: Spontaneous
  Country: CA (occurrence: CA)
  Receive Date: 20221031
  Receipt Date: 20221125
  Transmission Date: 20230113
  Serious: Yes (Other)
  Sender: FDA-Public Use
  Company Number: CA-BEH-2022151161

PATIENT
  Sex: Female
  Weight: 76 kg

DRUGS (17)
  1. ALBUREX [Suspect]
     Active Substance: ALBUMIN HUMAN
     Indication: Aortic dissection
     Dosage: 100 MILLILITER, TOT
     Route: 042
     Dates: start: 20190723, end: 20190723
  2. ALBUREX [Suspect]
     Active Substance: ALBUMIN HUMAN
     Dosage: 100 MILLILITER, TOT
     Route: 042
     Dates: start: 20190723, end: 20190723
  3. ALBUREX [Suspect]
     Active Substance: ALBUMIN HUMAN
     Indication: Aortic dissection
     Dosage: 250 MILLILITER, TOT
     Route: 042
     Dates: start: 20190710, end: 20190710
  4. ALBUREX [Suspect]
     Active Substance: ALBUMIN HUMAN
     Dosage: 500 MILLILITER
     Route: 042
     Dates: start: 20190710, end: 20190710
  5. BERIPLEX P/N [Suspect]
     Active Substance: COAGULATION FACTOR IX HUMAN\COAGULATION FACTOR VII HUMAN\COAGULATION FACTOR X HUMAN\PROTEIN C\PROTEI
     Indication: Aortic dissection
     Dosage: 1000 INTERNATIONAL UNIT, TOT
     Route: 042
     Dates: start: 20190710, end: 20190710
  6. BERIPLEX P/N [Suspect]
     Active Substance: COAGULATION FACTOR IX HUMAN\COAGULATION FACTOR VII HUMAN\COAGULATION FACTOR X HUMAN\PROTEIN C\PROTEI
     Indication: Aortic dissection
     Dosage: 1000 INTERNATIONAL UNIT, TOT
     Route: 042
     Dates: start: 20190710, end: 20190710
  7. PLATELETS [Concomitant]
     Active Substance: HUMAN PLATELET, ALLOGENIC
     Dosage: UNK
     Dates: start: 20190710
  8. PLATELETS [Concomitant]
     Active Substance: HUMAN PLATELET, ALLOGENIC
     Dosage: UNK
     Dates: start: 20190710
  9. PLATELETS [Concomitant]
     Active Substance: HUMAN PLATELET, ALLOGENIC
     Dosage: UNK
     Dates: start: 20190710
  10. PLASMA, FRESH FROZEN [Concomitant]
     Active Substance: HUMAN PLASMA
     Dosage: UNK
     Dates: start: 20190710
  11. PLASMA, FRESH FROZEN [Concomitant]
     Active Substance: HUMAN PLASMA
     Dosage: UNK
     Dates: start: 20190710
  12. HUMAN RED BLOOD CELL [Concomitant]
     Active Substance: HUMAN RED BLOOD CELL
     Dosage: UNK
     Dates: start: 20190710
  13. HUMAN RED BLOOD CELL [Concomitant]
     Active Substance: HUMAN RED BLOOD CELL
     Dosage: UNK
     Dates: start: 20190710
  14. CRYOPRECIPITATED ANTIHEMOPHILIC FACTOR (HUMAN) [Concomitant]
     Active Substance: CRYOPRECIPITATED ANTIHEMOPHILIC FACTOR (HUMAN)
     Dosage: UNK
     Dates: start: 20190710
  15. THROMBIN [Concomitant]
     Active Substance: THROMBIN
     Dosage: 60 MILLILITER, TOT
     Dates: start: 20190710
  16. TISSEEL VH [Concomitant]
     Active Substance: FIBRINOGEN HUMAN\THROMBIN HUMAN
     Dosage: 1500 INTERNATIONAL UNIT, TOT
     Dates: start: 20190710
  17. ANCEF O [Concomitant]
     Dosage: UNK
     Dates: start: 20190710

REACTIONS (13)
  - Transfusion-related acute lung injury [Unknown]
  - Dyspnoea [Unknown]
  - Respiratory rate decreased [Unknown]
  - Blood pressure decreased [Unknown]
  - Acute pulmonary oedema [Unknown]
  - Transfusion-related circulatory overload [Unknown]
  - Dyspnoea [Unknown]
  - Respiratory rate decreased [Unknown]
  - Blood pressure decreased [Unknown]
  - Acute kidney injury [Unknown]
  - Shock haemorrhagic [Unknown]
  - Metabolic acidosis [Unknown]
  - Delirium [Unknown]

NARRATIVE: CASE EVENT DATE: 20190701
